FAERS Safety Report 22746166 (Version 5)
Quarter: 2024Q1

REPORT INFORMATION
  Report Type: Report from Study
  Country: US (occurrence: US)
  Receive Date: 20230725
  Receipt Date: 20240110
  Transmission Date: 20240410
  Serious: Yes (Hospitalization, Other)
  Sender: FDA-Public Use
  Company Number: US-TAKEDA-2023TUS065629

PATIENT
  Sex: Female

DRUGS (2)
  1. VEDOLIZUMAB [Suspect]
     Active Substance: VEDOLIZUMAB
     Indication: Colitis ulcerative
     Dosage: 300 MILLIGRAM
     Route: 042
  2. VEDOLIZUMAB [Suspect]
     Active Substance: VEDOLIZUMAB
     Indication: Iron deficiency anaemia

REACTIONS (8)
  - Colitis ulcerative [Unknown]
  - Haemorrhage [Unknown]
  - Malaise [Unknown]
  - Asthenia [Unknown]
  - Illness [Unknown]
  - Stress at work [Unknown]
  - Inappropriate schedule of product administration [Unknown]
  - Off label use [Unknown]
